FAERS Safety Report 8836285 (Version 3)
Quarter: 2012Q4

REPORT INFORMATION
  Report Type: 
  Country: US (occurrence: US)
  Receive Date: 20121011
  Receipt Date: 20121019
  Transmission Date: 20130627
  Serious: Yes (Death, Hospitalization)
  Sender: FDA-Public Use
  Company Number: US-B.I. PHARMACEUTICALS,INC./RIDGEFIELD-2012-BP-25156BP

PATIENT
  Age: 84 Year
  Sex: Female

DRUGS (16)
  1. PRADAXA [Suspect]
     Indication: ATRIAL FIBRILLATION
     Dosage: 300 mg
  2. VITAMIN B12 [Concomitant]
     Indication: VITAMIN SUPPLEMENTATION
     Dosage: 1000 mcg
  3. FUROSEMIDE [Concomitant]
     Indication: HYDROTHERAPY
     Dosage: 20 mcg
  4. SIMVASTATIN [Concomitant]
     Indication: BLOOD CHOLESTEROL ABNORMAL
     Dosage: 80 mg
  5. ADVAIR [Concomitant]
     Indication: CHRONIC OBSTRUCTIVE PULMONARY DISEASE
  6. SPIRIVA [Concomitant]
     Indication: CHRONIC OBSTRUCTIVE PULMONARY DISEASE
     Dosage: 18 mcg
  7. ALBUTEROL MDI [Concomitant]
     Indication: DYSPNOEA
  8. OSCAL D [Concomitant]
  9. GLIMEPIRIDE [Concomitant]
     Dosage: 2 mg
  10. NIASPAN ER [Concomitant]
     Dosage: 1000 mg
  11. VITAMIN D [Concomitant]
     Indication: BONE DISORDER
  12. FISH OIL [Concomitant]
     Indication: BLOOD CHOLESTEROL ABNORMAL
     Dosage: 2400 mg
  13. METHIMAZOLE [Concomitant]
     Dosage: 5 mg
  14. ES TYLENOL [Concomitant]
  15. ALENDRONATE [Concomitant]
  16. METOPROLOL [Concomitant]
     Dosage: 100 mg

REACTIONS (3)
  - Cerebrovascular accident [Fatal]
  - Fall [Unknown]
  - Compression fracture [Unknown]
